FAERS Safety Report 21301456 (Version 1)
Quarter: 2022Q3

REPORT INFORMATION
  Report Type: Spontaneous
  Country: US (occurrence: None)
  Receive Date: 20220906
  Receipt Date: 20220906
  Transmission Date: 20221027
  Serious: Yes (Hospitalization)
  Sender: FDA-Public Use
  Company Number: None

PATIENT
  Sex: Female

DRUGS (4)
  1. TRIKAFTA [Suspect]
     Active Substance: ELEXACAFTOR\IVACAFTOR\TEZACAFTOR
     Indication: Cystic fibrosis
     Dosage: OTHER QUANTITY : 100-50-75 + 150 MG;?FREQUENCY : TWICE A DAY;?
     Route: 048
     Dates: start: 20211008
  2. COLISTIMETHATE [Concomitant]
     Active Substance: COLISTIMETHATE SODIUM
  3. PULMOZYME [Concomitant]
     Active Substance: DORNASE ALFA
  4. STERILE WATER [Concomitant]
     Active Substance: WATER

REACTIONS (1)
  - Hospitalisation [None]
